FAERS Safety Report 15350697 (Version 3)
Quarter: 2018Q4

REPORT INFORMATION
  Report Type: Report from Study
  Country: PL (occurrence: PL)
  Receive Date: 20180905
  Receipt Date: 20181009
  Transmission Date: 20190204
  Serious: Yes (Hospitalization)
  Sender: FDA-Public Use
  Company Number: PL-ROCHE-2177904

PATIENT
  Age: 68 Year
  Sex: Male
  Weight: 98 kg

DRUGS (11)
  1. ATEZOLIZUMAB. [Suspect]
     Active Substance: ATEZOLIZUMAB
     Indication: RENAL CELL CARCINOMA
     Dosage: DATE OF MOST RECENT DOSE OF STUDY DRUG A PRIOR TO AE ONSET: 08/AUG/2018
     Route: 042
     Dates: start: 20180607
  2. PROKIT [Concomitant]
     Route: 048
     Dates: start: 20180321
  3. TERTENSIF SR [Concomitant]
     Indication: HYPERTENSION
     Route: 048
     Dates: start: 200405
  4. MILURIT [Concomitant]
     Active Substance: ALLOPURINOL
     Indication: HYPERURICAEMIA
     Route: 048
     Dates: start: 201004
  5. METOPROLOL TARTRATE. [Concomitant]
     Active Substance: METOPROLOL TARTRATE
     Indication: HYPERTENSION
     Route: 048
     Dates: start: 20170322
  6. BEVACIZUMAB. [Suspect]
     Active Substance: BEVACIZUMAB
     Indication: RENAL CELL CARCINOMA
     Dosage: DATE OF MOST RECENT DOSE OF STUDY DRUG B PRIOR TO AE ONSET: 1560 MG ON 08/AUG/2018
     Route: 065
     Dates: start: 20180607
  7. LECALPIN [Concomitant]
     Indication: HYPERTENSION
     Route: 048
     Dates: start: 20180109
  8. AXUDAN [Concomitant]
     Active Substance: VALSARTAN
     Indication: HYPERTENSION
     Route: 048
     Dates: start: 20180109
  9. EUTHYROX [Concomitant]
     Active Substance: LEVOTHYROXINE SODIUM
     Indication: THYROIDECTOMY
     Route: 048
     Dates: start: 20170324
  10. PANTOPRAZOLE [Concomitant]
     Active Substance: PANTOPRAZOLE
     Route: 048
  11. ULGASTRAN [Concomitant]
     Route: 048
     Dates: start: 20180321

REACTIONS (2)
  - Aspartate aminotransferase increased [Recovered/Resolved]
  - Alanine aminotransferase increased [Recovered/Resolved]

NARRATIVE: CASE EVENT DATE: 20180829
